FAERS Safety Report 9358621 (Version 1)
Quarter: 2013Q2

REPORT INFORMATION
  Report Type: Spontaneous
  Country: CA (occurrence: CA)
  Receive Date: 20130620
  Receipt Date: 20130620
  Transmission Date: 20140414
  Serious: Yes (Other)
  Sender: FDA-Public Use
  Company Number: CA-GLAXOSMITHKLINE-A1026783A

PATIENT
  Sex: Male

DRUGS (3)
  1. VOTRIENT [Suspect]
     Indication: SARCOMA
     Dosage: 800MG PER DAY
     Route: 048
     Dates: start: 20130404, end: 20130529
  2. AZARGA [Concomitant]
     Route: 047
  3. TRAVATAN [Concomitant]
     Route: 047

REACTIONS (1)
  - Malignant neoplasm progression [Not Recovered/Not Resolved]
